FAERS Safety Report 5950528-8 (Version None)
Quarter: 2008Q4

REPORT INFORMATION
  Report Type: 
  Country: None (occurrence: None)
  Receive Date: 20081022
  Receipt Date: 20080726
  Transmission Date: 20090506
  Serious: No
  Sender: FDA-Public Use
  Company Number: SPV1-2008-01580

PATIENT
  Age: 7 Year
  Sex: Male
  Weight: 45.8 kg

DRUGS (2)
  1. VYVANSE [Suspect]
     Indication: ATTENTION DEFICIT/HYPERACTIVITY DISORDER
     Dosage: 30 MG, 1X/DAY:QD, ORAL
     Route: 048
     Dates: start: 20080623, end: 20080601
  2. LORATADINE [Concomitant]

REACTIONS (4)
  - ABNORMAL BEHAVIOUR [None]
  - DERMATILLOMANIA [None]
  - HALLUCINATION, VISUAL [None]
  - PARANOIA [None]
